FAERS Safety Report 21669978 (Version 1)
Quarter: 2022Q4

REPORT INFORMATION
  Report Type: Report from Study
  Country: US (occurrence: US)
  Receive Date: 20221201
  Receipt Date: 20221201
  Transmission Date: 20230112
  Serious: No
  Sender: FDA-Public Use
  Company Number: US-ABBVIE-4192056

PATIENT
  Sex: Male

DRUGS (2)
  1. HUMIRA [Suspect]
     Active Substance: ADALIMUMAB
     Indication: Ankylosing spondylitis
     Dosage: STRENGTH:40MG, LAST ADMIN DATE:2022, ONSET DATE FOR HUMIRA WAS NOT WORKING TO IT^S FULL POTENTIAL...
     Route: 058
     Dates: start: 202205
  2. HUMIRA [Suspect]
     Active Substance: ADALIMUMAB
     Dosage: STRENGTH:40MG, FIRST ADMIN DATE:2022
     Route: 058

REACTIONS (1)
  - Therapeutic product effect incomplete [Unknown]
